FAERS Safety Report 4572635-7 (Version None)
Quarter: 2005Q1

REPORT INFORMATION
  Report Type: 
  Country: None (occurrence: None)
  Receive Date: 20050208
  Receipt Date: 20041101
  Transmission Date: 20050727
  Serious: No
  Sender: FDA-Public Use
  Company Number: US-GLAXOSMITHKLINE-A0532034A

PATIENT
  Age: 72 Year
  Sex: Male

DRUGS (8)
  1. PAXIL CR [Suspect]
     Indication: DEPRESSION
     Dosage: 12.5MG PER DAY
     Route: 048
     Dates: start: 20040901
  2. METHOTREXATE [Concomitant]
  3. FOSAMAX [Concomitant]
  4. PROSCAR [Concomitant]
  5. TOPROL-XL [Concomitant]
  6. CALCIUM GLUCONATE [Concomitant]
  7. PREDNISONE [Concomitant]
  8. ASPIRIN [Concomitant]

REACTIONS (4)
  - DEPRESSION [None]
  - DYSKINESIA [None]
  - HEART RATE DECREASED [None]
  - HYPOAESTHESIA [None]
